FAERS Safety Report 6479565-4 (Version None)
Quarter: 2009Q4

REPORT INFORMATION
  Report Type: 
  Country: None (occurrence: None)
  Receive Date: 20091207
  Receipt Date: 20091207
  Transmission Date: 20100525
  Serious: No
  Sender: FDA-Public Use
  Company Number: None

PATIENT
  Age: 72 Year
  Sex: Female
  Weight: 77.1115 kg

DRUGS (1)
  1. COUMADIN [Suspect]
     Indication: THROMBOSIS
     Dosage: 3MG.MN.+TH.4MG.TU.WE.FR.SA.+SU ONCE DAILY PO
     Route: 048
     Dates: start: 20091013, end: 20091128

REACTIONS (7)
  - BLISTER [None]
  - BREAST PAIN [None]
  - PRURITUS GENERALISED [None]
  - RASH [None]
  - REACTION TO COLOURING [None]
  - REACTION TO DRUG EXCIPIENTS [None]
  - SKIN DISCOLOURATION [None]
